FAERS Safety Report 9481849 (Version 1)
Quarter: 2013Q3

REPORT INFORMATION
  Report Type: Spontaneous
  Country: DE (occurrence: DE)
  Receive Date: 20130828
  Receipt Date: 20130828
  Transmission Date: 20140515
  Serious: Yes (Other)
  Sender: FDA-Public Use
  Company Number: DE-AMGEN-DEUSP2013060150

PATIENT
  Age: 81 Year
  Sex: Female

DRUGS (5)
  1. ENBREL [Suspect]
     Indication: RHEUMATOID ARTHRITIS
     Dosage: 50 MG, WEEKLY
     Route: 065
     Dates: start: 20101001
  2. PREDNISON [Concomitant]
     Dosage: 8 MG, UNK
  3. CORTISONE [Concomitant]
     Dosage: 10 MG
  4. FENTANYL [Concomitant]
     Dosage: UNK
     Route: 062
  5. NOVAMIN                            /00013301/ [Concomitant]
     Dosage: UNK

REACTIONS (1)
  - Age-related macular degeneration [Unknown]
